FAERS Safety Report 20225982 (Version 2)
Quarter: 2022Q1

REPORT INFORMATION
  Report Type: Spontaneous
  Country: US (occurrence: US)
  Receive Date: 20211224
  Receipt Date: 20220113
  Transmission Date: 20220423
  Serious: Yes (Other)
  Sender: FDA-Public Use
  Company Number: US-JNJFOC-20211237850

PATIENT
  Sex: Male
  Weight: 68.100 kg

DRUGS (4)
  1. HALDOL DECANOATE [Suspect]
     Active Substance: HALOPERIDOL DECANOATE
     Indication: Schizophrenia
     Route: 013
  2. HALDOL DECANOATE [Suspect]
     Active Substance: HALOPERIDOL DECANOATE
     Route: 013
  3. HALDOL DECANOATE [Suspect]
     Active Substance: HALOPERIDOL DECANOATE
     Route: 013
  4. LOSARTAN [Concomitant]
     Active Substance: LOSARTAN
     Indication: Hypertension
     Route: 065

REACTIONS (8)
  - Mental impairment [Recovering/Resolving]
  - Aortic aneurysm [Unknown]
  - Memory impairment [Recovering/Resolving]
  - Mood altered [Recovering/Resolving]
  - Agitation [Recovering/Resolving]
  - Drug ineffective [Unknown]
  - Incorrect route of product administration [Unknown]
  - Off label use [Unknown]
